FAERS Safety Report 23981678 (Version 1)
Quarter: 2024Q2

REPORT INFORMATION
  Report Type: Spontaneous
  Country: US (occurrence: None)
  Receive Date: 20240615
  Receipt Date: 20240615
  Transmission Date: 20240716
  Serious: No
  Sender: FDA-Public Use
  Company Number: None

PATIENT
  Sex: 0

DRUGS (2)
  1. CARBOPLATIN [Suspect]
     Active Substance: CARBOPLATIN
     Dosage: 16 ML INTRAVENOUS
     Route: 042
     Dates: start: 20240501, end: 20240501
  2. PACLITAXEL [Suspect]
     Active Substance: PACLITAXEL
     Dosage: 84 MG INTRAVENOUS
     Route: 042
     Dates: start: 20240501, end: 20240501

REACTIONS (4)
  - Infusion related reaction [None]
  - Unresponsive to stimuli [None]
  - Hyperhidrosis [None]
  - Flushing [None]

NARRATIVE: CASE EVENT DATE: 20240501
